FAERS Safety Report 25109427 (Version 2)
Quarter: 2025Q2

REPORT INFORMATION
  Report Type: Spontaneous
  Country: US (occurrence: US)
  Receive Date: 20250323
  Receipt Date: 20250527
  Transmission Date: 20250716
  Serious: Yes (Hospitalization)
  Sender: BIOVITRUM
  Company Number: US-BIOVITRUM-2025-US-003862

PATIENT
  Age: 75 Year
  Sex: Male

DRUGS (1)
  1. VONJO [Suspect]
     Active Substance: PACRITINIB
     Indication: Myelofibrosis
     Route: 048
     Dates: start: 20241119

REACTIONS (5)
  - Hypotension [Unknown]
  - Haemoglobin decreased [Unknown]
  - Gait inability [Unknown]
  - Psychiatric symptom [Unknown]
  - Bedridden [Unknown]
